FAERS Safety Report 16413373 (Version 2)
Quarter: 2019Q2

REPORT INFORMATION
  Report Type: Spontaneous
  Country: BR (occurrence: BR)
  Receive Date: 20190611
  Receipt Date: 20190614
  Transmission Date: 20190711
  Serious: Yes (Other)
  Sender: FDA-Public Use
  Company Number: BR-ABBVIE-19P-020-2815530-00

PATIENT
  Age: 38 Year
  Sex: Female

DRUGS (4)
  1. CERAZETTE [Concomitant]
     Indication: MENSTRUAL DISORDER
  2. CERAZETTE [Concomitant]
     Indication: CONTRACEPTION
     Dosage: CONTINUOUS USE, DOES NOT HAVE THAT USUAL PAUSE; ONGOING
     Route: 048
     Dates: start: 2005
  3. SYNTHROID [Suspect]
     Active Substance: LEVOTHYROXINE SODIUM
     Indication: THYROID HORMONE REPLACEMENT THERAPY
     Dosage: FORM STRENGTH: 125 MCG; FREQUENCY: MONDAY TO FRIDAY IN THE MORNING (FASTING); ONGOING
     Route: 048
     Dates: start: 201312
  4. SYNTHROID [Suspect]
     Active Substance: LEVOTHYROXINE SODIUM
     Dosage: FORM STRENGTH: 137 MCG; FREQUENCY: ON SATURDAY AND SUNDAY IN THE MORNING (FASTING);ONGOING
     Route: 048

REACTIONS (1)
  - Neoplasm recurrence [Not Recovered/Not Resolved]

NARRATIVE: CASE EVENT DATE: 201901
